FAERS Safety Report 24354982 (Version 4)
Quarter: 2025Q3

REPORT INFORMATION
  Report Type: Report from Study
  Country: US (occurrence: US)
  Receive Date: 20240923
  Receipt Date: 20250924
  Transmission Date: 20251021
  Serious: No
  Sender: SUNOVION
  Company Number: US-SUMITOMO PHARMA SWITZERLAND GMBH-2024SPA002101

PATIENT
  Age: 65 Year
  Sex: Male

DRUGS (1)
  1. ORGOVYX [Suspect]
     Active Substance: RELUGOLIX
     Indication: Prostate cancer
     Dosage: 120 MG, QD...STARTED WITH BIOLOIGICS
     Route: 048
     Dates: start: 20240821

REACTIONS (10)
  - Micturition urgency [Unknown]
  - Gastroenteritis viral [Recovering/Resolving]
  - Night sweats [Unknown]
  - Hot flush [Unknown]
  - Arthritis [Unknown]
  - Asthenia [Unknown]
  - Musculoskeletal stiffness [Unknown]
  - Pain in extremity [Unknown]
  - Product dose omission in error [Recovered/Resolved]
  - Incorrect dose administered [Recovered/Resolved]
